FAERS Safety Report 10363178 (Version 3)
Quarter: 2014Q3

REPORT INFORMATION
  Report Type: Report from Study
  Country: CA (occurrence: CA)
  Receive Date: 20140805
  Receipt Date: 20140820
  Transmission Date: 20150326
  Serious: Yes (Other)
  Sender: FDA-Public Use
  Company Number: CA-SA-2014SA098199

PATIENT
  Age: 27 Year
  Sex: Female

DRUGS (1)
  1. AUBAGIO [Suspect]
     Active Substance: TERIFLUNOMIDE
     Indication: MULTIPLE SCLEROSIS
     Route: 048
     Dates: start: 20140714

REACTIONS (3)
  - Visual impairment [Recovering/Resolving]
  - Nausea [Recovered/Resolved]
  - Optic neuritis [Recovering/Resolving]

NARRATIVE: CASE EVENT DATE: 20140721
